FAERS Safety Report 17316773 (Version 1)
Quarter: 2020Q1

REPORT INFORMATION
  Report Type: Spontaneous
  Country: US (occurrence: US)
  Receive Date: 20200124
  Receipt Date: 20200124
  Transmission Date: 20200409
  Serious: No
  Sender: FDA-Public Use
  Company Number: US-PERRIGO-19US002410

PATIENT
  Age: 10 Year
  Sex: Female
  Weight: 28.57 kg

DRUGS (4)
  1. IBUPROFEN. [Suspect]
     Active Substance: IBUPROFEN
     Indication: PAIN
     Dosage: 150 MG, SINGLE
     Route: 048
     Dates: start: 20190218, end: 20190218
  2. IBUPROFEN. [Suspect]
     Active Substance: IBUPROFEN
     Indication: PYREXIA
  3. IBUPROFEN. [Concomitant]
     Active Substance: IBUPROFEN
     Indication: PAIN
     Dosage: UNKNOWN, SINGLE
     Route: 048
     Dates: start: 20190218, end: 20190218
  4. IBUPROFEN. [Concomitant]
     Active Substance: IBUPROFEN
     Indication: PYREXIA

REACTIONS (3)
  - Vomiting [Recovered/Resolved]
  - Rash [Recovering/Resolving]
  - Underdose [Recovered/Resolved]

NARRATIVE: CASE EVENT DATE: 20190218
